FAERS Safety Report 25212692 (Version 1)
Quarter: 2025Q2

REPORT INFORMATION
  Report Type: Spontaneous
  Country: US (occurrence: US)
  Receive Date: 20250418
  Receipt Date: 20250418
  Transmission Date: 20250717
  Serious: No
  Sender: AUROBINDO
  Company Number: US-AUROBINDO-AUR-APL-2024-017357

PATIENT

DRUGS (2)
  1. ARMODAFINIL [Suspect]
     Active Substance: ARMODAFINIL
     Indication: Fatigue
     Route: 065
  2. ARMODAFINIL [Suspect]
     Active Substance: ARMODAFINIL
     Indication: Attention deficit hyperactivity disorder

REACTIONS (20)
  - Blood pressure fluctuation [Unknown]
  - Mood swings [Unknown]
  - Pain [Unknown]
  - Vision blurred [Unknown]
  - Brain fog [Unknown]
  - Cognitive disorder [Unknown]
  - Asthenia [Unknown]
  - Somnolence [Unknown]
  - Feeling drunk [Unknown]
  - Influenza like illness [Unknown]
  - Head discomfort [Unknown]
  - Menstruation irregular [Unknown]
  - Dyspnoea [Unknown]
  - Dysarthria [Unknown]
  - Vertigo [Unknown]
  - Visual impairment [Unknown]
  - Therapeutic product effect variable [Unknown]
  - Suspected product quality issue [Unknown]
  - Suspected product contamination [Unknown]
  - Product substitution issue [Unknown]
